FAERS Safety Report 9138747 (Version 1)
Quarter: 2013Q1

REPORT INFORMATION
  Report Type: Spontaneous
  Country: US (occurrence: US)
  Receive Date: 20130305
  Receipt Date: 20130305
  Transmission Date: 20140127
  Serious: No
  Sender: FDA-Public Use
  Company Number: US-009507513-1303USA001269

PATIENT
  Age: 87 Year
  Sex: Male

DRUGS (4)
  1. MIRTAZAPINE [Suspect]
     Indication: DEPRESSION
     Dosage: UNK
  2. CITALOPRAM [Suspect]
     Dosage: UNK
  3. CITALOPRAM [Suspect]
     Dosage: 10 MG, UNK
  4. CITALOPRAM [Suspect]
     Dosage: 20 MG, UNK

REACTIONS (1)
  - Myoclonus [Recovered/Resolved]
